FAERS Safety Report 19532416 (Version 1)
Quarter: 2021Q3

REPORT INFORMATION
  Report Type: Spontaneous
  Country: US (occurrence: US)
  Receive Date: 20210714
  Receipt Date: 20210714
  Transmission Date: 20211014
  Serious: No
  Sender: FDA-Public Use
  Company Number: US-ORGANON-O2107USA000682

PATIENT
  Age: 30 Year
  Sex: Female

DRUGS (3)
  1. NORETHINDRONE ACETATE AND ETHINYL ESTRADIOL [Concomitant]
     Active Substance: ETHINYL ESTRADIOL\NORETHINDRONE ACETATE
  2. FOLLISTIM [Suspect]
     Active Substance: FOLLITROPIN
     Indication: BLOOD FOLLICLE STIMULATING HORMONE
     Dosage: 1 DOSAGE FORM, QD
     Route: 058
     Dates: start: 20210625
  3. KETOCONAZOLE. [Concomitant]
     Active Substance: KETOCONAZOLE
     Dosage: UNK

REACTIONS (1)
  - Muscle spasms [Unknown]

NARRATIVE: CASE EVENT DATE: 20210704
